FAERS Safety Report 4617486-X (Version None)
Quarter: 2005Q1

REPORT INFORMATION
  Report Type: 
  Country: None (occurrence: None)
  Receive Date: 20050324
  Receipt Date: 20050321
  Transmission Date: 20050727
  Serious: Yes (Death)
  Sender: FDA-Public Use
  Company Number: US-JNJFOC-20050101966

PATIENT
  Sex: Female
  Weight: 39.92 kg

DRUGS (1)
  1. DURAGESIC-100 [Suspect]
     Route: 062
     Dates: start: 20040501, end: 20041001

REACTIONS (4)
  - DYSPHAGIA [None]
  - SYSTEMIC SCLEROSIS [None]
  - VOMITING [None]
  - WEIGHT DECREASED [None]
